FAERS Safety Report 17895210 (Version 2)
Quarter: 2020Q2

REPORT INFORMATION
  Report Type: Spontaneous
  Country: JP (occurrence: JP)
  Receive Date: 20200615
  Receipt Date: 20200619
  Transmission Date: 20200714
  Serious: Yes (Death, Other)
  Sender: FDA-Public Use
  Company Number: JP-CHEPLA-C20201734

PATIENT
  Age: 67 Year
  Sex: Female
  Weight: 48.3 kg

DRUGS (9)
  1. CYCLOPHOSPHAMIDE MONOHYDRATE [Suspect]
     Active Substance: CYCLOPHOSPHAMIDE
     Indication: EPSTEIN-BARR VIRUS ASSOCIATED LYMPHOMA
     Dosage: 4 COURSES R-CHOP
     Route: 065
     Dates: start: 201804, end: 2018
  2. DOXORUBICIN HYDROCHLORIDE. [Suspect]
     Active Substance: DOXORUBICIN HYDROCHLORIDE
     Indication: EPSTEIN-BARR VIRUS ASSOCIATED LYMPHOMA
     Dosage: 4 COURSES R-CHOP
     Route: 065
     Dates: start: 201804, end: 2018
  3. RITUXAN [Suspect]
     Active Substance: RITUXIMAB
     Indication: EPSTEIN-BARR VIRUS ASSOCIATED LYMPHOMA
     Dosage: 4 COURSES RITUXIMAB MONOTHERAPY
     Route: 041
     Dates: start: 2018, end: 2018
  4. RITUXAN [Suspect]
     Active Substance: RITUXIMAB
     Indication: EPSTEIN-BARR VIRUS ASSOCIATED LYMPHOMA
     Dosage: 4 COURSES R-CHOP
     Route: 041
     Dates: start: 201804
  5. DENOSINE FOR I.V. INFUSION 500MG (GANCICLOVIR SODIUM) [Suspect]
     Active Substance: GANCICLOVIR SODIUM
     Indication: CYTOMEGALOVIRUS INFECTION REACTIVATION
     Dosage: GANCICLOVIR WAS ADMINISTERED INTERMITTENTLY
     Route: 065
     Dates: start: 201804
  6. DENOSINE FOR I.V. INFUSION 500MG (GANCICLOVIR SODIUM) [Suspect]
     Active Substance: GANCICLOVIR SODIUM
     Indication: CYTOMEGALOVIRUS INFECTION REACTIVATION
     Route: 031
     Dates: start: 201711
  7. PREDNISOLONE. [Suspect]
     Active Substance: PREDNISOLONE
     Indication: EPSTEIN-BARR VIRUS ASSOCIATED LYMPHOMA
     Dosage: 4 COURSES R-CHOP + 4 COURSES RITUXIMAB MONOTHERAPY
     Route: 065
     Dates: start: 201804, end: 2018
  8. VINCRISTINE SULFATE. [Suspect]
     Active Substance: VINCRISTINE SULFATE
     Indication: EPSTEIN-BARR VIRUS ASSOCIATED LYMPHOMA
     Dosage: 4 COURSES R-CHOP + 4 COURSES RITUXIMAB MONOTHERAPY
     Route: 065
     Dates: start: 201804, end: 2018
  9. DENOSINE FOR I.V. INFUSION 500MG (GANCICLOVIR SODIUM) [Suspect]
     Active Substance: GANCICLOVIR SODIUM
     Indication: CYTOMEGALOVIRUS INFECTION REACTIVATION
     Route: 042
     Dates: start: 201711

REACTIONS (10)
  - Diffuse large B-cell lymphoma [Unknown]
  - Adult T-cell lymphoma/leukaemia [Unknown]
  - Neutropenia [Unknown]
  - Product use in unapproved indication [Unknown]
  - Product use issue [Unknown]
  - Bronchopulmonary aspergillosis [Unknown]
  - Pneumonia cryptococcal [Unknown]
  - White blood cell count decreased [Unknown]
  - Cytomegalovirus infection reactivation [Unknown]
  - Sepsis [Fatal]

NARRATIVE: CASE EVENT DATE: 201804
